FAERS Safety Report 10638408 (Version 1)
Quarter: 2014Q4

REPORT INFORMATION
  Report Type: Spontaneous
  Country: US (occurrence: US)
  Receive Date: 20141208
  Receipt Date: 20141208
  Transmission Date: 20150529
  Serious: Yes (Other)
  Sender: FDA-Public Use
  Company Number: US-ASTELLAS-2014US018861

PATIENT
  Age: 72 Year
  Sex: Female

DRUGS (1)
  1. MYRBETRIQ [Suspect]
     Active Substance: MIRABEGRON
     Indication: PRODUCT USED FOR UNKNOWN INDICATION
     Route: 065

REACTIONS (6)
  - Oedema peripheral [Unknown]
  - Drug ineffective [Unknown]
  - Micturition urgency [Unknown]
  - Urine output decreased [Unknown]
  - Dysuria [Unknown]
  - Urine flow decreased [Unknown]
